FAERS Safety Report 14270971 (Version 12)
Quarter: 2022Q2

REPORT INFORMATION
  Report Type: Spontaneous
  Country: GB (occurrence: GB)
  Receive Date: 20171211
  Receipt Date: 20220510
  Transmission Date: 20220720
  Serious: Yes (Death, Hospitalization, Other)
  Sender: FDA-Public Use
  Company Number: GB-OTSUKA-2016_030349

PATIENT
  Age: 44 Year
  Sex: Female
  Weight: 114 kg

DRUGS (17)
  1. ARIPIPRAZOLE [Suspect]
     Active Substance: ARIPIPRAZOLE
     Indication: Schizophrenia
     Dosage: 10 MG, UNK
     Route: 048
     Dates: start: 20070101
  2. CLOZARIL [Suspect]
     Active Substance: CLOZAPINE
     Indication: Schizophrenia
     Dosage: 550 MG, QD
     Route: 048
     Dates: start: 20060101
  3. CLOZARIL [Suspect]
     Active Substance: CLOZAPINE
     Dosage: 550 MG, QD
     Route: 048
     Dates: start: 20061120
  4. TRIHEXYPHENIDYL HYDROCHLORIDE [Suspect]
     Active Substance: TRIHEXYPHENIDYL HYDROCHLORIDE
     Indication: Salivary hypersecretion
     Dosage: 2 MG, UNK
     Route: 048
     Dates: start: 20110101
  5. VENTOLIN [Concomitant]
     Active Substance: ALBUTEROL SULFATE
     Indication: Chronic obstructive pulmonary disease
     Dosage: 100 MG, QD
     Route: 065
  6. VENTOLIN [Concomitant]
     Active Substance: ALBUTEROL SULFATE
     Dosage: 100 MG, BID
     Route: 065
  7. OMEPRAZOLE [Concomitant]
     Active Substance: OMEPRAZOLE
     Indication: Abdominal discomfort
     Dosage: 20 MG, QD
     Route: 048
  8. METFORMIN [Concomitant]
     Active Substance: METFORMIN HYDROCHLORIDE
     Indication: Type 2 diabetes mellitus
     Dosage: UNK, QD
     Route: 048
  9. BECLOMETHASONE [Concomitant]
     Active Substance: BECLOMETHASONE
     Indication: Chronic obstructive pulmonary disease
     Dosage: 50 MG, BID
     Route: 065
  10. BECLOMETHASONE [Concomitant]
     Active Substance: BECLOMETHASONE
     Dosage: 100 MG, QD (50 MG, BID)
     Route: 065
  11. BECLOMETHASONE [Concomitant]
     Active Substance: BECLOMETHASONE
     Dosage: 50 MG, BID
     Route: 065
  12. BEZAFIBRATE [Concomitant]
     Active Substance: BEZAFIBRATE
     Indication: Hypercholesterolaemia
     Dosage: 400 MG, QD
     Route: 048
  13. DOCUSATE SODIUM [Concomitant]
     Active Substance: DOCUSATE SODIUM
     Indication: Constipation
     Dosage: 200 MG, BID
     Route: 048
  14. DOCUSATE SODIUM [Concomitant]
     Active Substance: DOCUSATE SODIUM
     Dosage: 400 MG, QD
     Route: 048
  15. IRBESARTAN [Concomitant]
     Active Substance: IRBESARTAN
     Indication: Hypertension
     Dosage: 150 MG, QD
     Route: 048
  16. PIOGLITAZONE [Concomitant]
     Active Substance: PIOGLITAZONE
     Indication: Type 2 diabetes mellitus
     Dosage: 45 MG, QD
     Route: 048
  17. ASPIRIN [Concomitant]
     Active Substance: ASPIRIN
     Indication: Product used for unknown indication
     Dosage: 75 MG, QD
     Route: 048

REACTIONS (7)
  - Unresponsive to stimuli [Fatal]
  - Salivary hypersecretion [Fatal]
  - Constipation [Fatal]
  - Gastric disorder [Fatal]
  - Haematemesis [Fatal]
  - Diverticular perforation [Fatal]
  - Peritonitis [Fatal]

NARRATIVE: CASE EVENT DATE: 20110101
